FAERS Safety Report 14599003 (Version 1)
Quarter: 2018Q1

REPORT INFORMATION
  Report Type: Spontaneous
  Country: FR (occurrence: FR)
  Receive Date: 20180305
  Receipt Date: 20180305
  Transmission Date: 20180509
  Serious: Yes (Hospitalization)
  Sender: FDA-Public Use
  Company Number: FR-009507513-1802FRA011990

PATIENT
  Age: 52 Year
  Sex: Female

DRUGS (1)
  1. DIPROSTENE [Suspect]
     Active Substance: BETAMETHASONE DIPROPIONATE\BETAMETHASONE SODIUM PHOSPHATE
     Indication: ARTHROPATHY
     Dosage: UNSPECIFIED
     Route: 014
     Dates: start: 20170912, end: 20170912

REACTIONS (1)
  - Mycobacterium chelonae infection [Recovering/Resolving]

NARRATIVE: CASE EVENT DATE: 201709
